FAERS Safety Report 18241288 (Version 1)
Quarter: 2020Q3

REPORT INFORMATION
  Report Type: Spontaneous
  Country: US (occurrence: US)
  Receive Date: 20200906
  Receipt Date: 20200906
  Transmission Date: 20201103
  Serious: Yes (Disabling, Other)
  Sender: FDA-Public Use
  Company Number: None

PATIENT
  Age: 49 Year
  Sex: Female
  Weight: 74.25 kg

DRUGS (2)
  1. NATURE?THROID [Suspect]
     Active Substance: THYROID, PORCINE
     Indication: HYPOTHYROIDISM
     Route: 060
     Dates: start: 20171101, end: 20200906
  2. PROGESTERONE. [Concomitant]
     Active Substance: PROGESTERONE

REACTIONS (7)
  - Weight increased [None]
  - Swelling face [None]
  - General physical health deterioration [None]
  - Arthralgia [None]
  - Recalled product administered [None]
  - Abdominal distension [None]
  - Alopecia [None]

NARRATIVE: CASE EVENT DATE: 20200801
